FAERS Safety Report 8412803-7 (Version None)
Quarter: 2012Q2

REPORT INFORMATION
  Report Type: 
  Country: None (occurrence: None)
  Receive Date: 20120605
  Receipt Date: 20120523
  Transmission Date: 20120825
  Serious: No
  Sender: FDA-Public Use
  Company Number: US-AMGEN-USASP2012032417

PATIENT
  Sex: Female

DRUGS (1)
  1. ENBREL [Suspect]
     Indication: RHEUMATOID ARTHRITIS
     Dosage: UNK
     Dates: start: 20000201

REACTIONS (4)
  - DRUG INEFFECTIVE [None]
  - UNEVALUABLE EVENT [None]
  - GAIT DISTURBANCE [None]
  - RHEUMATOID ARTHRITIS [None]
